FAERS Safety Report 10307334 (Version 1)
Quarter: 2014Q3

REPORT INFORMATION
  Report Type: Spontaneous
  Country: DE (occurrence: DE)
  Receive Date: 20140716
  Receipt Date: 20140716
  Transmission Date: 20150326
  Serious: Yes (Congenital Anomaly)
  Sender: FDA-Public Use
  Company Number: GXKR2014DE002585

PATIENT

DRUGS (2)
  1. CITALOPRAM [Suspect]
     Active Substance: CITALOPRAM HYDROBROMIDE
     Indication: DEPRESSION
     Dosage: 30 [MG/D ]/ SLOW DOSAGE REDUCTION TO10 MG.
     Route: 064
     Dates: start: 20130109, end: 20131007
  2. FOLIO [Concomitant]
     Active Substance: FOLIC ACID
     Indication: PROPHYLAXIS OF NEURAL TUBE DEFECT
     Dosage: 0.4 [MG/D ]
     Route: 064
     Dates: start: 20130109, end: 20131007

REACTIONS (1)
  - Developmental hip dysplasia [Recovering/Resolving]

NARRATIVE: CASE EVENT DATE: 20131007
